FAERS Safety Report 6610108-8 (Version None)
Quarter: 2010Q1

REPORT INFORMATION
  Report Type: 
  Country: None (occurrence: None)
  Receive Date: 20100302
  Receipt Date: 20100219
  Transmission Date: 20100710
  Serious: Yes (Hospitalization)
  Sender: FDA-Public Use
  Company Number: AU-JNJFOC-20090700600

PATIENT
  Sex: Female

DRUGS (9)
  1. BLINDED; GOLIMUMA [Suspect]
     Route: 058
  2. BLINDED; GOLIMUMA [Suspect]
     Indication: COLITIS ULCERATIVE
     Route: 058
  3. PLACEBO [Suspect]
     Indication: COLITIS ULCERATIVE
     Route: 058
  4. NORDETTE-28 [Concomitant]
  5. SALAZOPYRINE [Concomitant]
     Indication: COLITIS ULCERATIVE
     Route: 048
  6. SALOFALK [Concomitant]
     Indication: COLITIS ULCERATIVE
     Route: 048
  7. ACETAMINOPHEN AND CODEINE PHOSPHATE [Concomitant]
     Indication: COLITIS ULCERATIVE
     Route: 048
  8. COLAZIDE [Concomitant]
     Indication: COLITIS ULCERATIVE
     Route: 048
  9. PREDNISOLONE [Concomitant]
     Indication: COLITIS ULCERATIVE
     Route: 048

REACTIONS (1)
  - COLECTOMY [None]
